FAERS Safety Report 23416851 (Version 4)
Quarter: 2025Q1

REPORT INFORMATION
  Report Type: Spontaneous
  Country: US (occurrence: US)
  Receive Date: 20240118
  Receipt Date: 20250107
  Transmission Date: 20250408
  Serious: No
  Sender: PFIZER
  Company Number: US-PFIZER INC-PV202400006854

PATIENT
  Age: 69 Year
  Sex: Male

DRUGS (6)
  1. BOSULIF [Suspect]
     Active Substance: BOSUTINIB MONOHYDRATE
     Indication: Philadelphia positive chronic myeloid leukaemia
     Dosage: 300 MG, 1X/DAY, TAKE 3 TABLETS (100 MG TABS), ONCE DAILY
     Route: 048
  2. BOSULIF [Suspect]
     Active Substance: BOSUTINIB MONOHYDRATE
     Indication: Chronic myeloid leukaemia
  3. ZITHROMAX [Concomitant]
     Active Substance: AZITHROMYCIN DIHYDRATE
     Dosage: 500 MG, DAILY, 2 TABLETS (500) MG BY MOUTH DAILY FOR 1 DAY,
     Route: 048
     Dates: start: 20241127
  4. ZITHROMAX [Concomitant]
     Active Substance: AZITHROMYCIN DIHYDRATE
     Dosage: 250 MG, DAILY, 1 TABLET (250MG) DAILY FOR 4 DAYS.
     Route: 048
  5. NEURONTIN [Concomitant]
     Active Substance: GABAPENTIN
     Dosage: 300 MG, 3X/DAY (TAKE 1 CAPSULE (300 MG) 3 TIMES DAILY).
     Route: 048
  6. VIAGRA [Concomitant]
     Active Substance: SILDENAFIL CITRATE
     Indication: Erectile dysfunction
     Route: 048

REACTIONS (1)
  - Trisomy 12 [Unknown]
